FAERS Safety Report 21076673 (Version 1)
Quarter: 2022Q3

REPORT INFORMATION
  Report Type: Report from Study
  Country: JP (occurrence: JP)
  Receive Date: 20220713
  Receipt Date: 20220713
  Transmission Date: 20221026
  Serious: No
  Sender: FDA-Public Use
  Company Number: JP-GLAXOSMITHKLINE-JP2020JPN080932

PATIENT

DRUGS (25)
  1. MEPOLIZUMAB [Suspect]
     Active Substance: MEPOLIZUMAB
     Indication: Eosinophilic granulomatosis with polyangiitis
     Dosage: 300MG EVERY 4 WEEKS
     Route: 058
     Dates: start: 20191026, end: 20191026
  2. MEPOLIZUMAB [Suspect]
     Active Substance: MEPOLIZUMAB
     Dosage: 300MG EVERY 4 WEEKS
     Route: 058
     Dates: start: 20200125, end: 20200125
  3. MEPOLIZUMAB [Suspect]
     Active Substance: MEPOLIZUMAB
     Dosage: 300MG EVERY 4 WEEKS
     Route: 058
     Dates: start: 20200222, end: 20200222
  4. MEPOLIZUMAB [Suspect]
     Active Substance: MEPOLIZUMAB
     Dosage: 300MG EVERY 4 WEEKS
     Route: 058
     Dates: start: 20200328, end: 20200328
  5. MEPOLIZUMAB [Suspect]
     Active Substance: MEPOLIZUMAB
     Dosage: 300MG EVERY 4 WEEKS
     Route: 058
     Dates: start: 20200502, end: 20200502
  6. MEPOLIZUMAB [Suspect]
     Active Substance: MEPOLIZUMAB
     Dosage: 300MG EVERY 4 WEEKS
     Route: 058
     Dates: start: 20200530, end: 20200530
  7. MEPOLIZUMAB [Suspect]
     Active Substance: MEPOLIZUMAB
     Dosage: 300MG EVERY 4 WEEKS
     Route: 058
     Dates: start: 20200627, end: 20200627
  8. MEPOLIZUMAB [Suspect]
     Active Substance: MEPOLIZUMAB
     Dosage: 300MG EVERY 4 WEEKS
     Route: 058
     Dates: start: 20200725, end: 20200725
  9. MEPOLIZUMAB [Suspect]
     Active Substance: MEPOLIZUMAB
     Dosage: 300MG EVERY 4 WEEKS
     Route: 058
     Dates: start: 20200822, end: 20200822
  10. MEPOLIZUMAB [Suspect]
     Active Substance: MEPOLIZUMAB
     Dosage: 300MG EVERY 4 WEEKS
     Route: 058
     Dates: start: 20200926, end: 20200926
  11. PREDNISOLONE [Suspect]
     Active Substance: PREDNISOLONE
     Indication: Eosinophilic granulomatosis with polyangiitis
     Dosage: UNK
  12. PREDNISOLONE [Suspect]
     Active Substance: PREDNISOLONE
     Dosage: 7 MG, 1D
     Dates: end: 20200222
  13. PREDNISOLONE [Suspect]
     Active Substance: PREDNISOLONE
     Dosage: 6 MG, 1D
     Dates: start: 20200223, end: 20200328
  14. PREDNISOLONE [Suspect]
     Active Substance: PREDNISOLONE
     Dosage: 5 MG, 1D
     Dates: start: 20200329, end: 20200530
  15. PREDNISOLONE [Suspect]
     Active Substance: PREDNISOLONE
     Dosage: 4 MG, 1D
     Dates: start: 20200531, end: 20200627
  16. PREDNISOLONE [Suspect]
     Active Substance: PREDNISOLONE
     Dosage: 3 MG, 1D
     Dates: start: 20200628, end: 20200822
  17. PREDNISOLONE [Suspect]
     Active Substance: PREDNISOLONE
     Dosage: 2 MG, 1D
     Dates: start: 20200823
  18. SERETIDE [Suspect]
     Active Substance: FLUTICASONE PROPIONATE\SALMETEROL XINAFOATE
     Indication: Eosinophilic granulomatosis with polyangiitis
     Dosage: 100 ?G, 1D
     Route: 055
  19. SERETIDE [Suspect]
     Active Substance: FLUTICASONE PROPIONATE\SALMETEROL XINAFOATE
     Indication: Asthma
  20. IMURAN [Concomitant]
     Active Substance: AZATHIOPRINE
     Indication: Eosinophilic granulomatosis with polyangiitis
     Dosage: 50 MG, 1D
  21. NEXIUM [Concomitant]
     Active Substance: ESOMEPRAZOLE MAGNESIUM
     Indication: Prophylaxis
  22. EDIROL CAPSULE [Concomitant]
     Indication: Prophylaxis
  23. BROTIZOLAM [Concomitant]
     Active Substance: BROTIZOLAM
  24. MONTELUKAST SODIUM [Concomitant]
     Active Substance: MONTELUKAST SODIUM
     Indication: Seasonal allergy
  25. FEXOFENADINE HYDROCHLORIDE [Concomitant]
     Active Substance: FEXOFENADINE HYDROCHLORIDE
     Indication: Seasonal allergy

REACTIONS (4)
  - Interleukin level increased [Unknown]
  - Blood immunoglobulin E increased [Unknown]
  - Rheumatoid factor increased [Unknown]
  - Product use in unapproved indication [Unknown]

NARRATIVE: CASE EVENT DATE: 20200125
